FAERS Safety Report 23972645 (Version 1)
Quarter: 2024Q2

REPORT INFORMATION
  Report Type: Spontaneous
  Country: US (occurrence: US)
  Receive Date: 20240613
  Receipt Date: 20240613
  Transmission Date: 20240716
  Serious: Yes (Hospitalization, Other)
  Sender: FDA-Public Use
  Company Number: US-OTSUKA-2024_012557

PATIENT
  Age: 43 Year
  Sex: Female
  Weight: 82.55 kg

DRUGS (13)
  1. ABILIFY [Suspect]
     Active Substance: ARIPIPRAZOLE
     Indication: Product used for unknown indication
     Dosage: UNK
     Route: 065
     Dates: start: 20231127, end: 202401
  2. ABILIFY ASIMTUFII [Suspect]
     Active Substance: ARIPIPRAZOLE
     Indication: Depression
     Dosage: 1064 MG
     Route: 065
     Dates: end: 20240318
  3. ABILIFY ASIMTUFII [Suspect]
     Active Substance: ARIPIPRAZOLE
     Dosage: 960 MG
     Route: 065
     Dates: start: 20240513
  4. ARIPIPRAZOLE [Suspect]
     Active Substance: ARIPIPRAZOLE
     Indication: Depression
     Dosage: 10 MG, QD
     Route: 048
     Dates: start: 2023
  5. CYTOMEL [Concomitant]
     Active Substance: LIOTHYRONINE SODIUM
     Indication: Thyroid disorder
     Dosage: 5MCG IN THE MORNING
     Route: 065
  6. SYNTHROID [Concomitant]
     Active Substance: LEVOTHYROXINE SODIUM
     Indication: Goitre
     Dosage: 100 MCG
     Route: 065
  7. SYNTHROID [Concomitant]
     Active Substance: LEVOTHYROXINE SODIUM
     Dosage: 88MCG ONCE A DAY
     Route: 065
  8. FLONASE [Concomitant]
     Active Substance: FLUTICASONE PROPIONATE
     Indication: Hypersensitivity
     Dosage: UNK (IN THE MORNING AND AT BEDTIME)
     Route: 065
  9. SEASONALE [Concomitant]
     Active Substance: ETHINYL ESTRADIOL\LEVONORGESTREL
     Indication: Contraception
     Dosage: UNK
     Route: 065
  10. LAMICTAL [Concomitant]
     Active Substance: LAMOTRIGINE
     Indication: Seizure
     Dosage: 175 MG, QD AT BEDTIME
     Route: 065
  11. GABAPENTIN [Concomitant]
     Active Substance: GABAPENTIN
     Indication: Seizure
     Dosage: 900 MG, QD AT BEDTIME
     Route: 065
  12. SEROQUEL [Concomitant]
     Active Substance: QUETIAPINE FUMARATE
     Indication: Product used for unknown indication
     Dosage: UNK
     Route: 065
  13. VITAMIN B12 [Concomitant]
     Active Substance: CYANOCOBALAMIN
     Indication: Memory impairment
     Dosage: 500MCG IN THE MORNING
     Route: 065

REACTIONS (13)
  - Road traffic accident [Unknown]
  - Animal bite [Unknown]
  - Cardiac disorder [Unknown]
  - Seizure [Unknown]
  - Adverse drug reaction [Unknown]
  - Contusion [Unknown]
  - Red blood cell morphology abnormal [Unknown]
  - Injection site swelling [Unknown]
  - Injection site pain [Unknown]
  - Dizziness [Unknown]
  - Overdose [Unknown]
  - Therapy change [Unknown]
  - Product use in unapproved indication [Unknown]

NARRATIVE: CASE EVENT DATE: 20240101
